FAERS Safety Report 5307650-9 (Version None)
Quarter: 2007Q2

REPORT INFORMATION
  Report Type: 
  Country: None (occurrence: None)
  Receive Date: 20070425
  Receipt Date: 20070413
  Transmission Date: 20071010
  Serious: Yes (Death, Hospitalization, Other)
  Sender: FDA-Public Use
  Company Number: JP-PFIZER INC-2007017006

PATIENT
  Sex: Male
  Weight: 63 kg

DRUGS (16)
  1. ZYVOX [Suspect]
     Indication: STAPHYLOCOCCAL INFECTION
     Route: 042
     Dates: start: 20070217, end: 20070228
  2. LEVOFLOXACIN [Suspect]
     Indication: BACTERIAL INFECTION
     Route: 048
     Dates: start: 20070224, end: 20070227
  3. VANCOMYCIN HCL [Concomitant]
     Route: 042
     Dates: start: 20070118, end: 20070216
  4. TIENAM [Concomitant]
     Route: 042
     Dates: start: 20070118, end: 20070216
  5. THEOLONG [Concomitant]
     Route: 048
     Dates: start: 20050101, end: 20070228
  6. ASPIRIN [Concomitant]
     Route: 048
     Dates: start: 20050101, end: 20070228
  7. TAKEPRON [Concomitant]
     Route: 048
     Dates: start: 20050101, end: 20070228
  8. ALLOPURINOL [Concomitant]
     Route: 048
     Dates: start: 20050101, end: 20070228
  9. MUCOSOLVAN [Concomitant]
     Route: 048
     Dates: start: 20050101, end: 20070228
  10. LASIX [Concomitant]
     Route: 048
     Dates: start: 20050101, end: 20070228
  11. NITOROL R [Concomitant]
     Route: 048
     Dates: start: 20050101, end: 20070228
  12. MUCODYNE [Concomitant]
     Route: 048
     Dates: start: 20050101, end: 20070228
  13. CLARITHROMYCIN [Concomitant]
     Route: 048
     Dates: start: 20050101, end: 20070228
  14. PURSENNID [Concomitant]
     Route: 048
     Dates: start: 20050101, end: 20070228
  15. CONIEL [Concomitant]
     Route: 048
     Dates: start: 20050101, end: 20070228
  16. ESPO [Concomitant]
     Dates: start: 20070116, end: 20070227

REACTIONS (4)
  - ACIDOSIS [None]
  - DEPRESSED LEVEL OF CONSCIOUSNESS [None]
  - HYPOGLYCAEMIA [None]
  - MULTI-ORGAN FAILURE [None]
